FAERS Safety Report 7725446-5 (Version None)
Quarter: 2011Q3

REPORT INFORMATION
  Report Type: 
  Country: None (occurrence: None)
  Receive Date: 20110902
  Receipt Date: 20110823
  Transmission Date: 20111222
  Serious: Yes (Other)
  Sender: FDA-Public Use
  Company Number: GB-JNJFOC-20110811003

PATIENT
  Sex: Male

DRUGS (2)
  1. SIMPONI [Suspect]
     Indication: ILL-DEFINED DISORDER
     Route: 058
     Dates: start: 20110802
  2. SIMPONI [Suspect]
     Route: 058

REACTIONS (1)
  - ANGINA UNSTABLE [None]
